FAERS Safety Report 25824663 (Version 2)
Quarter: 2025Q4

REPORT INFORMATION
  Report Type: Report from Study
  Country: CN (occurrence: CN)
  Receive Date: 20250919
  Receipt Date: 20251002
  Transmission Date: 20260118
  Serious: Yes (Hospitalization)
  Sender: EISAI
  Company Number: CN-Eisai-EC-2025-196566

PATIENT
  Age: 68 Year
  Sex: Female
  Weight: 44.7 kg

DRUGS (13)
  1. ERIBULIN [Suspect]
     Active Substance: ERIBULIN
     Indication: Breast cancer
     Dosage: D1 AND D8 OF EACH 21 DAY CYCLE
     Route: 042
     Dates: start: 20250820, end: 20250820
  2. ERIBULIN [Suspect]
     Active Substance: ERIBULIN
     Dosage: D1 AND D8 OF EACH 21 DAY CYCLE
     Route: 042
     Dates: start: 20250910, end: 20250910
  3. CAPECITABINE [Suspect]
     Active Substance: CAPECITABINE
     Indication: Breast cancer
     Dosage: 1000 MG IN THE MORNING AND 1500 MG IN THE EVENING ORALLY D1 TO D14 OF EACH 21 DAY CYCLE.
     Route: 048
     Dates: start: 20250820, end: 20250822
  4. CALCIUM CARBONATE\VITAMIN D [Concomitant]
     Active Substance: CALCIUM CARBONATE\VITAMIN D
     Indication: Osteoporosis
     Dates: start: 2023
  5. DENOSUMAB [Concomitant]
     Active Substance: DENOSUMAB
     Indication: Prophylaxis
     Dates: start: 20250417
  6. DENOSUMAB [Concomitant]
     Active Substance: DENOSUMAB
     Indication: Prophylaxis
     Dates: start: 20250417
  7. ALPRAZOLAM [Concomitant]
     Active Substance: ALPRAZOLAM
     Indication: Insomnia
     Route: 048
     Dates: start: 20250417
  8. BICYCLOL [Concomitant]
     Active Substance: BICYCLOL
     Indication: Aspartate aminotransferase increased
     Route: 048
     Dates: start: 20250814
  9. TEPRENONE [Concomitant]
     Active Substance: TEPRENONE
     Indication: Abdominal discomfort
     Route: 048
     Dates: start: 20250814, end: 202508
  10. LECITHIN [Concomitant]
     Active Substance: LECITHIN
     Indication: Aspartate aminotransferase increased
     Route: 048
     Dates: start: 20250620
  11. OMEPRAZOLE [Concomitant]
     Active Substance: OMEPRAZOLE
     Indication: Gastrointestinal disorder
     Route: 048
     Dates: start: 20250814, end: 202508
  12. BURNET ROOT LEUKOPOIETIC [Concomitant]
     Indication: White blood cell count decreased
     Route: 048
     Dates: start: 20250822
  13. BURNET ROOT LEUKOPOIETIC [Concomitant]
     Indication: Lymphocyte count decreased

REACTIONS (1)
  - Neutrophil count decreased [Recovered/Resolved]

NARRATIVE: CASE EVENT DATE: 20250827
